FAERS Safety Report 5392392-4 (Version None)
Quarter: 2007Q3

REPORT INFORMATION
  Report Type: 
  Country: None (occurrence: None)
  Receive Date: 20070720
  Receipt Date: 20070713
  Transmission Date: 20080115
  Serious: Yes (Other)
  Sender: FDA-Public Use
  Company Number: A0665346A

PATIENT
  Sex: Female

DRUGS (2)
  1. FLONASE [Suspect]
     Indication: DRUG USE FOR UNKNOWN INDICATION
     Route: 045
     Dates: start: 19990101, end: 20020101
  2. DURATUSS GP [Concomitant]
     Route: 048

REACTIONS (23)
  - ADVERSE DRUG REACTION [None]
  - AGEUSIA [None]
  - ANOSMIA [None]
  - BALANCE DISORDER [None]
  - BLEPHARITIS [None]
  - DRUG INEFFECTIVE [None]
  - EAR DISORDER [None]
  - EAR INFECTION [None]
  - EYE PAIN [None]
  - EYE SWELLING [None]
  - INTESTINAL OBSTRUCTION [None]
  - LYMPHOID TISSUE HYPERPLASIA [None]
  - NASAL CONGESTION [None]
  - NASAL MUCOSA ATROPHY [None]
  - NASAL MUCOSAL DISORDER [None]
  - OCULAR HYPERAEMIA [None]
  - PAIN [None]
  - PHARYNGEAL ERYTHEMA [None]
  - RHINORRHOEA [None]
  - SEXUAL DYSFUNCTION [None]
  - SINUS DISORDER [None]
  - SINUS HEADACHE [None]
  - SINUSITIS [None]
